FAERS Safety Report 7128537-5 (Version None)
Quarter: 2010Q4

REPORT INFORMATION
  Report Type: 
  Country: None (occurrence: None)
  Receive Date: 20101130
  Receipt Date: 20101119
  Transmission Date: 20110411
  Serious: No
  Sender: FDA-Public Use
  Company Number: US-JNJFOC-20101107557

PATIENT
  Sex: Female
  Weight: 99.79 kg

DRUGS (3)
  1. FENTANYL [Suspect]
     Indication: ILL-DEFINED DISORDER
     Route: 062
  2. FENTANYL-100 [Suspect]
     Indication: BACK PAIN
  3. FLAX SEED OIL [Concomitant]
     Indication: HYPERLIPIDAEMIA
     Dosage: 2 TABLE SPOON

REACTIONS (2)
  - PRODUCT ADHESION ISSUE [None]
  - WRONG TECHNIQUE IN DRUG USAGE PROCESS [None]
